FAERS Safety Report 11829593 (Version 2)
Quarter: 2016Q1

REPORT INFORMATION
  Report Type: Spontaneous
  Country: US (occurrence: US)
  Receive Date: 20151212
  Receipt Date: 20160223
  Transmission Date: 20160525
  Serious: No
  Sender: FDA-Public Use
  Company Number: US-009507513-1512USA003362

PATIENT
  Sex: Female
  Weight: 50.34 kg

DRUGS (2)
  1. NEXPLANON [Suspect]
     Active Substance: ETONOGESTREL
     Dosage: UNK
     Route: 059
     Dates: start: 20151111
  2. IMPLANON [Concomitant]
     Active Substance: ETONOGESTREL
     Dosage: UNK
     Route: 059
     Dates: start: 2010, end: 20151111

REACTIONS (3)
  - Device difficult to use [Unknown]
  - No adverse event [Unknown]
  - Complication associated with device [Unknown]

NARRATIVE: CASE EVENT DATE: 201511
